FAERS Safety Report 9508617 (Version 2)
Quarter: 2013Q3

REPORT INFORMATION
  Report Type: Spontaneous
  Country: US (occurrence: US)
  Receive Date: 20130909
  Receipt Date: 20130917
  Transmission Date: 20140515
  Serious: Yes (Hospitalization)
  Sender: FDA-Public Use
  Company Number: US-BAXTER-2013BAX034863

PATIENT
  Age: 68 Year
  Sex: Male

DRUGS (3)
  1. 0.9% SODIUM CHLORIDE INJECTION [Suspect]
     Indication: HAEMODIALYSIS
     Dates: start: 201012
  2. HEPARIN [Suspect]
     Indication: CATHETER MANAGEMENT
     Dates: start: 20130814, end: 20130814
  3. MORPHINE [Concomitant]
     Indication: PAIN
     Route: 048

REACTIONS (2)
  - Fall [Recovered/Resolved]
  - Subdural haematoma [Recovering/Resolving]
